FAERS Safety Report 25369622 (Version 1)
Quarter: 2025Q2

REPORT INFORMATION
  Report Type: Spontaneous
  Country: US (occurrence: None)
  Receive Date: 20250528
  Receipt Date: 20250528
  Transmission Date: 20250716
  Serious: Yes (Other)
  Sender: FDA-CTU
  Company Number: None

PATIENT
  Age: 63 Year
  Sex: Female
  Weight: 67.5 kg

DRUGS (1)
  1. CYMBALTA [Suspect]
     Active Substance: DULOXETINE HYDROCHLORIDE
     Indication: Pain
     Dates: start: 20190501, end: 20200501

REACTIONS (5)
  - Brain fog [None]
  - Balance disorder [None]
  - Increased need for sleep [None]
  - Fatigue [None]
  - Impaired work ability [None]

NARRATIVE: CASE EVENT DATE: 20200501
